FAERS Safety Report 23700457 (Version 1)
Quarter: 2024Q2

REPORT INFORMATION
  Report Type: Spontaneous
  Country: US (occurrence: None)
  Receive Date: 20240403
  Receipt Date: 20240403
  Transmission Date: 20240715
  Serious: No
  Sender: FDA-Public Use
  Company Number: 2024A073156

PATIENT
  Sex: Male

DRUGS (1)
  1. SEROQUEL [Suspect]
     Active Substance: QUETIAPINE FUMARATE
     Indication: Sleep disorder
     Dosage: USED AT NIGHT
     Route: 048

REACTIONS (9)
  - Speech disorder [Unknown]
  - Thinking abnormal [Unknown]
  - Feeling abnormal [Unknown]
  - Eye movement disorder [Unknown]
  - Regressive behaviour [Unknown]
  - Tongue disorder [Unknown]
  - Disorientation [Unknown]
  - Somnolence [Unknown]
  - Off label use [Unknown]
